FAERS Safety Report 23999297 (Version 1)
Quarter: 2024Q2

REPORT INFORMATION
  Report Type: Spontaneous
  Country: IT (occurrence: IT)
  Receive Date: 20240621
  Receipt Date: 20240621
  Transmission Date: 20240716
  Serious: Yes (Death, Hospitalization, Other)
  Sender: FDA-Public Use
  Company Number: IT-SUN PHARMACEUTICAL INDUSTRIES LTD-2024R1-451795

PATIENT
  Age: 63 Year
  Sex: Female

DRUGS (8)
  1. CEFTAZIDIME [Suspect]
     Active Substance: CEFTAZIDIME
     Indication: Dyspnoea
     Dosage: UNK
  2. CEFTAZIDIME [Suspect]
     Active Substance: CEFTAZIDIME
     Indication: Cough
     Dosage: UNK
     Route: 048
  3. TOBRAMYCIN [Suspect]
     Active Substance: TOBRAMYCIN\TOBRAMYCIN SULFATE
     Indication: Dyspnoea
     Dosage: UNK
  4. TOBRAMYCIN [Suspect]
     Active Substance: TOBRAMYCIN\TOBRAMYCIN SULFATE
     Indication: Cough
     Dosage: UNK
     Route: 048
  5. GENTAMICIN [Suspect]
     Active Substance: GENTAMICIN
     Indication: Dyspnoea
     Dosage: UNK
  6. GENTAMICIN [Suspect]
     Active Substance: GENTAMICIN
     Indication: Cough
     Dosage: UNK
     Route: 048
  7. COLISTIMETHATE SODIUM [Suspect]
     Active Substance: COLISTIMETHATE SODIUM
     Indication: Dyspnoea
  8. COLISTIMETHATE SODIUM [Suspect]
     Active Substance: COLISTIMETHATE SODIUM
     Indication: Cough
     Dosage: UNK
     Route: 048

REACTIONS (4)
  - Condition aggravated [Unknown]
  - Respiratory failure [Fatal]
  - Osteoporosis [Unknown]
  - Teratoma [Unknown]
